FAERS Safety Report 11349969 (Version 1)
Quarter: 2015Q3

REPORT INFORMATION
  Report Type: Spontaneous
  Country: CH (occurrence: CH)
  Receive Date: 20150807
  Receipt Date: 20150807
  Transmission Date: 20151125
  Serious: Yes (Other)
  Sender: FDA-Public Use
  Company Number: CH-BAYER-2013-039288

PATIENT
  Age: 44 Year
  Sex: Female

DRUGS (2)
  1. AVALOX [Suspect]
     Active Substance: MOXIFLOXACIN HYDROCHLORIDE
     Indication: ACUTE SINUSITIS
     Dosage: 400 MG, QD
     Route: 048
     Dates: start: 20121212, end: 20121217
  2. DEXAMETHASON [Concomitant]
     Active Substance: DEXAMETHASONE
     Indication: ACUTE SINUSITIS
     Dosage: 3 MG, QD
     Route: 048
     Dates: start: 20121212, end: 20121217

REACTIONS (5)
  - Iris atrophy [None]
  - Ocular discomfort [None]
  - Eye disorder [Not Recovered/Not Resolved]
  - Headache [None]
  - Iris transillumination defect [None]

NARRATIVE: CASE EVENT DATE: 20121225
